FAERS Safety Report 15021104 (Version 2)
Quarter: 2019Q1

REPORT INFORMATION
  Report Type: Spontaneous
  Country: US (occurrence: US)
  Receive Date: 20180618
  Receipt Date: 20190322
  Transmission Date: 20190417
  Serious: Yes (Death, Other)
  Sender: FDA-Public Use
  Company Number: US-HORIZON-VIM-0656-2018

PATIENT
  Sex: Male

DRUGS (22)
  1. MINOXIDIL. [Concomitant]
     Active Substance: MINOXIDIL
  2. PANTOPRAZOLE [Concomitant]
     Active Substance: PANTOPRAZOLE
  3. PRILOSEC OTC [Suspect]
     Active Substance: OMEPRAZOLE MAGNESIUM
     Route: 048
     Dates: start: 2001, end: 2011
  4. PROTONIX [Suspect]
     Active Substance: PANTOPRAZOLE SODIUM
     Route: 065
     Dates: start: 2001, end: 2011
  5. EPOGEN [Concomitant]
     Active Substance: ERYTHROPOIETIN
  6. PRILOSEC [Suspect]
     Active Substance: OMEPRAZOLE MAGNESIUM
     Route: 048
     Dates: start: 2001, end: 2011
  7. ACIPHEX [Suspect]
     Active Substance: RABEPRAZOLE SODIUM
     Route: 065
     Dates: start: 2001, end: 2011
  8. NOVOLOG [Concomitant]
     Active Substance: INSULIN ASPART
  9. CARVEDILOL. [Concomitant]
     Active Substance: CARVEDILOL
  10. LISINOPRIL. [Concomitant]
     Active Substance: LISINOPRIL
  11. NEPHROCAP [Concomitant]
  12. LANTUS [Concomitant]
     Active Substance: INSULIN GLARGINE
  13. HUMALOG [Concomitant]
     Active Substance: INSULIN LISPRO
  14. NEXIUM 24HR [Suspect]
     Active Substance: ESOMEPRAZOLE MAGNESIUM
     Route: 048
     Dates: start: 2001, end: 2011
  15. ZEMPLAR [Concomitant]
     Active Substance: PARICALCITOL
  16. FOLIC ACID. [Concomitant]
     Active Substance: FOLIC ACID
  17. PREVACID [Suspect]
     Active Substance: LANSOPRAZOLE
     Route: 065
     Dates: start: 2001, end: 2011
  18. LASIX [Concomitant]
     Active Substance: FUROSEMIDE
  19. NEXIUM [Suspect]
     Active Substance: ESOMEPRAZOLE MAGNESIUM
     Route: 048
     Dates: start: 2001, end: 2011
  20. VIMOVO [Suspect]
     Active Substance: ESOMEPRAZOLE MAGNESIUM\NAPROXEN
     Indication: PRODUCT USED FOR UNKNOWN INDICATION
     Route: 048
     Dates: start: 2001, end: 2011
  21. DEXILANT [Suspect]
     Active Substance: DEXLANSOPRAZOLE
     Route: 065
     Dates: start: 2001, end: 2011
  22. ZOCOR [Concomitant]
     Active Substance: SIMVASTATIN

REACTIONS (7)
  - Cardiac failure [Fatal]
  - Diabetic retinopathy [Fatal]
  - Chronic kidney disease [Unknown]
  - Renal failure [Fatal]
  - Diabetes mellitus [Fatal]
  - Acute myocardial infarction [Fatal]
  - Renal failure [Unknown]
